FAERS Safety Report 15271407 (Version 1)
Quarter: 2018Q3

REPORT INFORMATION
  Report Type: Spontaneous
  Country: US (occurrence: US)
  Receive Date: 20180727
  Receipt Date: 20180727
  Transmission Date: 20181010
  Serious: Yes (Hospitalization)
  Sender: FDA-Public Use
  Company Number: None

PATIENT
  Age: 76 Year
  Sex: Female
  Weight: 51.9 kg

DRUGS (7)
  1. ALLOPURINOL 300 MG DAILY [Concomitant]
  2. CALCITRIOL 0.25 MCG 6 DAYS/WEEK [Concomitant]
  3. PREDNISONE 20 MG DAILY [Concomitant]
  4. SPIRONOLACTONE 50 MG DAILY [Concomitant]
  5. SODIUM BICARBONATE 650 MG 3X/DAY [Concomitant]
  6. DAPSONE. [Suspect]
     Active Substance: DAPSONE
     Indication: STAPHYLOCOCCAL INFECTION
     Route: 048
     Dates: start: 20180612, end: 20180619
  7. DIPHENOXYLATE/ATROPINE 4 X DAILY PRN [Concomitant]

REACTIONS (3)
  - Methaemoglobinaemia [None]
  - Fatigue [None]
  - Diarrhoea [None]

NARRATIVE: CASE EVENT DATE: 20180619
